FAERS Safety Report 6855517-7 (Version None)
Quarter: 2010Q3

REPORT INFORMATION
  Report Type: 
  Country: None (occurrence: None)
  Receive Date: 20100719
  Receipt Date: 20100708
  Transmission Date: 20110219
  Serious: Yes (Death, Hospitalization)
  Sender: FDA-Public Use
  Company Number: FR-JNJFOC-20100702773

PATIENT
  Age: 59 Year
  Sex: Female

DRUGS (3)
  1. REMICADE [Suspect]
     Indication: RHEUMATOID ARTHRITIS
     Dosage: RECEIVED 9 INFUSIONS
     Route: 042
  2. METHOTREXATE [Suspect]
     Indication: RHEUMATOID ARTHRITIS
     Route: 048
  3. HYDROCORTISONE [Concomitant]
     Indication: RHEUMATOID ARTHRITIS
     Dosage: STARTED IN FEB OR APR

REACTIONS (3)
  - OVARIAN CANCER METASTATIC [None]
  - PANCYTOPENIA [None]
  - SEPTIC SHOCK [None]
